FAERS Safety Report 25884014 (Version 2)
Quarter: 2025Q4

REPORT INFORMATION
  Report Type: Report from Study
  Country: EU (occurrence: EU)
  Receive Date: 20251006
  Receipt Date: 20251008
  Transmission Date: 20260117
  Serious: Yes (Other)
  Sender: ALEXION PHARMACEUTICALS
  Company Number: EU-PFIZER INC-PV202500115120

PATIENT

DRUGS (8)
  1. TAGRISSO [Suspect]
     Active Substance: OSIMERTINIB
     Indication: Non-small cell lung cancer
     Dosage: UNK
     Route: 065
  2. CRIZOTINIB [Suspect]
     Active Substance: CRIZOTINIB
     Indication: Non-small cell lung cancer
     Dosage: UNK
     Route: 065
  3. CAPMATINIB [Suspect]
     Active Substance: CAPMATINIB
     Indication: Non-small cell lung cancer
     Route: 065
  4. DABRAFENIB [Suspect]
     Active Substance: DABRAFENIB
     Indication: Non-small cell lung cancer
     Route: 065
  5. AFATINIB [Suspect]
     Active Substance: AFATINIB
     Indication: Non-small cell lung cancer
     Route: 065
  6. ERDAFITINIB [Suspect]
     Active Substance: ERDAFITINIB
     Indication: Non-small cell lung cancer
     Route: 065
  7. TRASTUZUMAB [Suspect]
     Active Substance: TRASTUZUMAB
     Indication: Non-small cell lung cancer
     Route: 065
  8. TEPOTINIB [Suspect]
     Active Substance: TEPOTINIB
     Indication: Non-small cell lung cancer
     Route: 065

REACTIONS (10)
  - Thrombocytopenia [Unknown]
  - Blood creatine phosphokinase increased [Unknown]
  - Pneumonitis [Unknown]
  - Hepatic cytolysis [Unknown]
  - Cardiac failure [Unknown]
  - Oedema [Unknown]
  - Diarrhoea [Unknown]
  - Pyrexia [Unknown]
  - Mucocutaneous rash [Unknown]
  - Cardiovascular disorder [Unknown]
